FAERS Safety Report 20962018 (Version 1)
Quarter: 2022Q2

REPORT INFORMATION
  Report Type: Spontaneous
  Country: US (occurrence: None)
  Receive Date: 20220615
  Receipt Date: 20220615
  Transmission Date: 20220721
  Serious: No
  Sender: FDA-Public Use
  Company Number: US-MDD US Operations-MDD202203-000398

PATIENT
  Age: 77 Year
  Sex: Male
  Weight: 86.18 kg

DRUGS (15)
  1. APOKYN [Suspect]
     Active Substance: APOMORPHINE HYDROCHLORIDE
     Indication: Parkinson^s disease
     Dosage: 0.5ML PER DOSE
     Route: 058
  2. DUOPA [Concomitant]
     Active Substance: CARBIDOPA\LEVODOPA
     Dosage: NOT PROVIDED
  3. XANAX [Concomitant]
     Active Substance: ALPRAZOLAM
     Dosage: NOT PROVIDED
  4. BUPROPION HYDROCHLORIDE SR [Concomitant]
     Active Substance: BUPROPION HYDROCHLORIDE
     Dosage: NOT PROVIDED
  5. Colase [Concomitant]
     Dosage: NOT PROVIDED
  6. ASPIRIN [Concomitant]
     Active Substance: ASPIRIN
     Dosage: NOT PROVIDED
  7. OXYBUTYNIN CHLORIDE [Concomitant]
     Active Substance: OXYBUTYNIN CHLORIDE
     Dosage: NOT PROVIDED
  8. Carbidopa-Levodopa- Entacapone [Concomitant]
     Dosage: NOT PROVIDED
  9. INBRIJA [Concomitant]
     Active Substance: LEVODOPA
     Dosage: NOT PROVIDED
  10. MIRALAX [Concomitant]
     Active Substance: POLYETHYLENE GLYCOL 3350
     Dosage: NOT PROVIDED
  11. SERTRALINE HYDROCHLORIDE [Concomitant]
     Active Substance: SERTRALINE HYDROCHLORIDE
     Dosage: NOT PROVIDED
  12. XADAGO [Concomitant]
     Active Substance: SAFINAMIDE MESYLATE
     Dosage: NOT PROVIDED
  13. MAGNESIUM [Concomitant]
     Active Substance: MAGNESIUM
     Dosage: NOT PROVIDED
  14. NUPLAZID [Concomitant]
     Active Substance: PIMAVANSERIN TARTRATE
     Dosage: NOT PROVIDED
  15. CARBIDOPA\LEVODOPA [Concomitant]
     Active Substance: CARBIDOPA\LEVODOPA
     Dosage: NOT PROVIDED

REACTIONS (1)
  - Jejunostomy [Unknown]

NARRATIVE: CASE EVENT DATE: 20220224
